FAERS Safety Report 18345268 (Version 1)
Quarter: 2020Q4

REPORT INFORMATION
  Report Type: Spontaneous
  Country: US (occurrence: US)
  Receive Date: 20201005
  Receipt Date: 20201005
  Transmission Date: 20210114
  Serious: No
  Sender: FDA-Public Use
  Company Number: US-ALLERGAN-1944119US

PATIENT
  Age: 82 Year
  Sex: Female

DRUGS (3)
  1. LINZESS [Suspect]
     Active Substance: LINACLOTIDE
     Dosage: 290 ?G, UNKNOWN
     Route: 048
  2. LINZESS [Suspect]
     Active Substance: LINACLOTIDE
     Dosage: 145 ?G, QD
     Route: 048
     Dates: start: 20191009
  3. LINZESS [Suspect]
     Active Substance: LINACLOTIDE
     Indication: CONSTIPATION
     Dosage: 145 ?G, QD
     Route: 048
     Dates: end: 20191104

REACTIONS (2)
  - Drug ineffective [Unknown]
  - Abdominal pain [Recovered/Resolved]

NARRATIVE: CASE EVENT DATE: 2019
